FAERS Safety Report 9194495 (Version 1)
Quarter: 2013Q1

REPORT INFORMATION
  Report Type: Spontaneous
  Country: None (occurrence: US)
  Receive Date: 20130327
  Receipt Date: 20130327
  Transmission Date: 20140127
  Serious: No
  Sender: FDA-Public Use
  Company Number: US-ALLERGAN-1206639US

PATIENT
  Age: 54 Year
  Sex: Female

DRUGS (1)
  1. LATISSE 0.03% [Suspect]
     Indication: GROWTH OF EYELASHES
     Dosage: 2 GTT, QHS
     Route: 061
     Dates: start: 201204

REACTIONS (7)
  - Erythema [Unknown]
  - Pruritus [Unknown]
  - Madarosis [Unknown]
  - Eyelid oedema [Unknown]
  - Eyelids pruritus [Unknown]
  - Madarosis [Unknown]
  - Application site pruritus [Unknown]
